FAERS Safety Report 7997151 (Version 3)
Quarter: 2013Q3

REPORT INFORMATION
  Report Type: Report from Study
  Country: TW (occurrence: TW)
  Receive Date: 20110620
  Receipt Date: 20130812
  Transmission Date: 20140515
  Serious: Yes (Death, Hospitalization)
  Sender: FDA-Public Use
  Company Number: TW-CELGENEUS-153-C5013-11061379

PATIENT
  Sex: Female
  Weight: 49 kg

DRUGS (19)
  1. REVLIMID [Suspect]
     Indication: PLASMA CELL MYELOMA
     Dosage: 25 MICROGRAM
     Route: 048
     Dates: start: 20100531
  2. REVLIMID [Suspect]
     Dosage: 25 MICROGRAM
     Route: 048
     Dates: start: 20110503, end: 20110601
  3. DEXAMETHASONE [Concomitant]
     Indication: PLASMA CELL MYELOMA
     Route: 048
     Dates: start: 20110503, end: 20110524
  4. DEXAMETHASONE [Concomitant]
     Dosage: 20 MILLIGRAM
     Route: 048
     Dates: start: 20110530, end: 20110530
  5. PANTOLOC [Concomitant]
     Indication: GASTRITIS PROPHYLAXIS
     Dosage: 80 MICROGRAM
     Route: 046
     Dates: start: 20110503, end: 20110519
  6. ALLERMIN [Concomitant]
     Indication: PREMEDICATION
     Route: 041
     Dates: start: 20110516, end: 20110530
  7. ALLERMIN [Concomitant]
     Route: 041
     Dates: start: 20110605, end: 20110610
  8. ALLERMIN [Concomitant]
     Route: 041
     Dates: start: 20110610, end: 20110610
  9. LASIX [Concomitant]
     Indication: OEDEMA
     Dosage: 20 MICROGRAM
     Route: 041
     Dates: start: 20110516, end: 20110530
  10. LASIX [Concomitant]
     Dosage: 40 MILLIGRAM
     Route: 048
     Dates: start: 20110526, end: 20110608
  11. HEPARIN [Concomitant]
     Indication: PRODUCT USED FOR UNKNOWN INDICATION
     Dosage: 1000U
     Route: 041
     Dates: start: 20110516, end: 20110516
  12. HYDROCORTISON [Concomitant]
     Indication: PREMEDICATION
     Dosage: 100 MICROGRAM
     Route: 041
     Dates: start: 20110516, end: 20110516
  13. BACIDE [Concomitant]
     Indication: UPPER RESPIRATORY TRACT INFECTION
     Dosage: 3200 MICROGRAM
     Route: 048
     Dates: start: 20110530, end: 20110531
  14. IMOVANE [Concomitant]
     Indication: INSOMNIA
     Dosage: 7.5 MILLIGRAM
     Route: 046
     Dates: start: 20110530
  15. DANZEN [Concomitant]
     Indication: UPPER RESPIRATORY TRACT INFECTION
     Dosage: 45 MICROGRAM
     Route: 048
     Dates: start: 20110530, end: 20110601
  16. LANTUS [Concomitant]
     Indication: DIABETES MELLITUS
     Route: 065
  17. ENTECAVIR [Concomitant]
     Indication: HEPATITIS
     Route: 065
  18. FENTANYL [Concomitant]
     Indication: BONE PAIN
     Route: 062
  19. ZOMETA [Concomitant]
     Indication: BONE PAIN
     Route: 065

REACTIONS (3)
  - Febrile neutropenia [Fatal]
  - Septic shock [Fatal]
  - Pneumonia [Fatal]
